FAERS Safety Report 8158050-8 (Version None)
Quarter: 2012Q1

REPORT INFORMATION
  Report Type: 
  Country: None (occurrence: None)
  Receive Date: 20120222
  Receipt Date: 20120216
  Transmission Date: 20120608
  Serious: Yes (Hospitalization)
  Sender: FDA-Public Use
  Company Number: PHHO2012FR002944

PATIENT
  Sex: Female

DRUGS (3)
  1. NEORAL [Suspect]
     Indication: RENAL TRANSPLANT
     Dosage: 3 G, QD
     Route: 002
     Dates: start: 20111125, end: 20120217
  2. MYCOPHENOLATE MOFETIL (CELLCEPT) [Suspect]
     Indication: RENAL TRANSPLANT
     Dosage: 170 MG, QD
     Route: 002
     Dates: start: 20111125
  3. PREDNISOLONE [Suspect]
     Indication: TRANSPLANT REJECTION
     Dosage: 7.5 MG, QD
     Dates: start: 20111125

REACTIONS (2)
  - ENTEROCOLITIS HAEMORRHAGIC [None]
  - ANAEMIA [None]
